FAERS Safety Report 9199877 (Version 1)
Quarter: 2013Q1

REPORT INFORMATION
  Report Type: Spontaneous
  Country: FR (occurrence: FR)
  Receive Date: 20130329
  Receipt Date: 20130329
  Transmission Date: 20140127
  Serious: Yes (Hospitalization)
  Sender: FDA-Public Use
  Company Number: FR-AMGEN-FRASP2013020857

PATIENT
  Age: 58 Year
  Sex: Male

DRUGS (6)
  1. NEULASTA [Suspect]
     Indication: PRODUCT USED FOR UNKNOWN INDICATION
     Dosage: 6 MG, DAILLY
     Route: 042
     Dates: start: 201212, end: 201301
  2. CISPLATINE [Suspect]
     Indication: SMALL CELL LUNG CANCER METASTATIC
     Dosage: 106 MG, 1 IN 1 DEPENDING ON CYCLE
     Route: 042
     Dates: start: 20121126, end: 20130129
  3. ETOPOPHOS [Suspect]
     Indication: SMALL CELL LUNG CANCER METASTATIC
     Dosage: 132 MG, DAILY
     Route: 051
     Dates: start: 20121126, end: 20130130
  4. GRANISETRON [Suspect]
     Indication: PROPHYLAXIS
     Dosage: 3 MG, DAILY
     Route: 042
     Dates: start: 20121126, end: 20130131
  5. LARGACTIL [Suspect]
     Indication: PROPHYLAXIS
     Dosage: 25 MG, DAILY
     Route: 042
     Dates: start: 20121126, end: 20130129
  6. TRANXENE [Suspect]
     Indication: PREMEDICATION
     Dosage: 20 MG, DAILY
     Route: 042
     Dates: start: 20121126, end: 20130129

REACTIONS (2)
  - Hydrocephalus [Recovering/Resolving]
  - Cerebral haemorrhage [None]
